FAERS Safety Report 5997794-0 (Version None)
Quarter: 2008Q4

REPORT INFORMATION
  Report Type: 
  Country: None (occurrence: None)
  Receive Date: 20081212
  Receipt Date: 20081121
  Transmission Date: 20090506
  Serious: Yes (Hospitalization)
  Sender: FDA-Public Use
  Company Number: US-ABBOTT-08P-163-0489285-00

PATIENT
  Sex: Female
  Weight: 39.952 kg

DRUGS (15)
  1. HUMIRA [Suspect]
     Indication: CROHN'S DISEASE
     Route: 058
     Dates: start: 20070524
  2. ORTHO EVRA [Concomitant]
     Indication: CONTRACEPTION
     Dosage: 150/20MG
     Dates: start: 20051001
  3. ORTHO EVRA [Concomitant]
     Dosage: 150/20MG
     Dates: start: 20051001
  4. ALBUTEROL [Concomitant]
     Indication: ASTHMA
     Dates: start: 19920101
  5. ALBUTEROL [Concomitant]
     Dosage: 17 GRAM
     Dates: start: 20020101
  6. LORTAB [Concomitant]
     Indication: ABDOMINAL PAIN
     Dates: start: 20020101
  7. LORTAB [Concomitant]
     Dates: start: 20050722
  8. PHENERGAN HCL [Concomitant]
     Indication: NAUSEA
     Dates: start: 20020101
  9. PHENERGAN HCL [Concomitant]
     Dates: start: 20020101
  10. ADVIL ALLERGY SINUS [Concomitant]
     Indication: HEADACHE
  11. ADVIL ALLERGY SINUS [Concomitant]
     Indication: MYALGIA
  12. RANITIDINE HYDROCHLORIDE [Concomitant]
     Indication: GASTROOESOPHAGEAL REFLUX DISEASE
     Dates: start: 19950101
  13. RANITIDINE HYDROCHLORIDE [Concomitant]
     Dates: start: 20050101
  14. ALPRAZOLAM [Concomitant]
     Indication: ANXIETY
     Dates: start: 20051213
  15. RABEPRAZOLE SODIUM [Concomitant]
     Indication: GASTROOESOPHAGEAL REFLUX DISEASE
     Dates: start: 20051213

REACTIONS (1)
  - MUSCLE ABSCESS [None]
